FAERS Safety Report 4523146-6 (Version None)
Quarter: 2004Q4

REPORT INFORMATION
  Report Type: 
  Country: None (occurrence: None)
  Receive Date: 20041210
  Receipt Date: 20041123
  Transmission Date: 20050328
  Serious: Yes (Hospitalization)
  Sender: FDA-Public Use
  Company Number: PHBS2004NL15792

PATIENT
  Age: 63 Year
  Sex: Female

DRUGS (2)
  1. LAMISIL [Suspect]
     Indication: NAIL TINEA
     Dosage: 250 MG, QD
     Route: 048
     Dates: start: 20041105, end: 20041110
  2. ALPRAZOLAM [Concomitant]
     Dosage: .5 MG, TID

REACTIONS (1)
  - ARRHYTHMIA [None]
